FAERS Safety Report 19053776 (Version 1)
Quarter: 2021Q1

REPORT INFORMATION
  Report Type: Spontaneous
  Country: FR (occurrence: FR)
  Receive Date: 20210325
  Receipt Date: 20210325
  Transmission Date: 20210420
  Serious: Yes (Other)
  Sender: FDA-Public Use
  Company Number: FR-AUROBINDO-AUR-APL-2020-063836

PATIENT
  Age: 55 Year
  Sex: Male

DRUGS (10)
  1. IRINOTECAN [Suspect]
     Active Substance: IRINOTECAN
     Indication: COLORECTAL CANCER METASTATIC
     Dosage: 180 MILLIGRAM/SQ. METER
     Route: 065
     Dates: start: 20160930
  2. CETUXIMAB. [Suspect]
     Active Substance: CETUXIMAB
     Indication: COLORECTAL CANCER METASTATIC
     Dosage: 500 MILLIGRAM/SQ. METER
     Route: 042
     Dates: start: 20160930, end: 20181018
  3. LEVOFOLINATE DE CALCIUM [Concomitant]
     Active Substance: LEVOLEUCOVORIN CALCIUM
     Indication: COLORECTAL CANCER METASTATIC
     Dosage: 200 MILLIGRAM/SQ. METER
     Route: 065
  4. 5?FU [Suspect]
     Active Substance: FLUOROURACIL
     Dosage: 5600 MILLIGRAM
     Route: 065
     Dates: start: 20170612
  5. 5?FU [Suspect]
     Active Substance: FLUOROURACIL
     Dosage: 5500 MILLIGRAM
     Route: 065
     Dates: start: 20181018
  6. IRINOTECAN [Suspect]
     Active Substance: IRINOTECAN
     Dosage: 360 MILLIGRAM
     Route: 065
     Dates: start: 20170612
  7. IRINOTECAN [Suspect]
     Active Substance: IRINOTECAN
     Dosage: 360 MILLIGRAM
     Route: 065
     Dates: start: 20181018
  8. 5?FU [Suspect]
     Active Substance: FLUOROURACIL
     Dosage: 400 MILLIGRAM/SQ. METER
     Route: 065
     Dates: start: 20160930
  9. CETUXIMAB. [Suspect]
     Active Substance: CETUXIMAB
     Dosage: 980 MILLIGRAM/SQ. METER
     Route: 042
     Dates: start: 20191021
  10. 5?FU [Suspect]
     Active Substance: FLUOROURACIL
     Indication: COLORECTAL CANCER METASTATIC
     Dosage: 1200 MILLIGRAM/SQ. METER
     Route: 065
     Dates: start: 20160930

REACTIONS (2)
  - Skin toxicity [Unknown]
  - Toxic skin eruption [Unknown]

NARRATIVE: CASE EVENT DATE: 20190725
